FAERS Safety Report 7069764-5 (Version None)
Quarter: 2010Q4

REPORT INFORMATION
  Report Type: 
  Country: None (occurrence: None)
  Receive Date: 20101028
  Receipt Date: 20100610
  Transmission Date: 20110411
  Serious: No
  Sender: FDA-Public Use
  Company Number: US-WYE-H15648510

PATIENT
  Sex: Male
  Weight: 81.72 kg

DRUGS (1)
  1. PROTONIX [Suspect]
     Indication: DYSPEPSIA
     Dates: start: 20000101, end: 20080101

REACTIONS (9)
  - COGNITIVE DISORDER [None]
  - DYSURIA [None]
  - ELECTROENCEPHALOGRAM ABNORMAL [None]
  - ERECTILE DYSFUNCTION [None]
  - NEUROPATHY PERIPHERAL [None]
  - REBOUND EFFECT [None]
  - TINNITUS [None]
  - VITAMIN B12 DEFICIENCY [None]
  - VITAMIN D DEFICIENCY [None]
